FAERS Safety Report 6633658-7 (Version None)
Quarter: 2010Q1

REPORT INFORMATION
  Report Type: 
  Country: None (occurrence: None)
  Receive Date: 20100312
  Receipt Date: 20100308
  Transmission Date: 20100710
  Serious: Yes (Death, Life-Threatening, Hospitalization)
  Sender: FDA-Public Use
  Company Number: US-AMGEN-ICO240747

PATIENT
  Sex: Female

DRUGS (8)
  1. DARBEPOETIN ALFA [Suspect]
     Indication: RENAL FAILURE CHRONIC
     Route: 058
     Dates: start: 20061215, end: 20070809
  2. NOVOLIN 70/30 [Concomitant]
     Indication: DIABETES MELLITUS
     Route: 058
     Dates: start: 19880808
  3. NOVOLIN 70/30 [Concomitant]
  4. K-DUR [Concomitant]
     Route: 048
     Dates: start: 20070629
  5. ALLOPURINOL [Concomitant]
     Route: 048
     Dates: start: 20010130
  6. HYDROCHLOROTHIAZIDE [Concomitant]
     Route: 048
     Dates: start: 19880808
  7. LIPITOR [Concomitant]
     Route: 048
     Dates: start: 20070205
  8. CAPTOPRIL [Concomitant]
     Route: 048
     Dates: start: 20010424

REACTIONS (12)
  - ACUTE MYOCARDIAL INFARCTION [None]
  - ASPIRATION [None]
  - ATRIAL FIBRILLATION [None]
  - CARDIO-RESPIRATORY ARREST [None]
  - CARDIOGENIC SHOCK [None]
  - CARDIOMEGALY [None]
  - HYPOTENSION [None]
  - MYOCARDIAL INFARCTION [None]
  - RESPIRATORY FAILURE [None]
  - UNRESPONSIVE TO STIMULI [None]
  - VENTRICULAR TACHYCARDIA [None]
  - VOMITING [None]
